FAERS Safety Report 10648922 (Version 2)
Quarter: 2014Q4

REPORT INFORMATION
  Report Type: Report from Study
  Country: US (occurrence: US)
  Receive Date: 20141212
  Receipt Date: 20141212
  Transmission Date: 20150529
  Serious: Yes (Other)
  Sender: FDA-Public Use
  Company Number: US-BAYER-2014-170437

PATIENT
  Age: 60 Year
  Sex: Male

DRUGS (2)
  1. NEXAVAR [Suspect]
     Active Substance: SORAFENIB
     Indication: HEPATOCELLULAR CARCINOMA
     Dosage: 200 MG, BID
     Route: 048
     Dates: start: 201409
  2. NEXAVAR [Suspect]
     Active Substance: SORAFENIB
     Indication: HEPATOCELLULAR CARCINOMA
     Dosage: 200 MG, BID
     Route: 048
     Dates: start: 201401

REACTIONS (9)
  - Dysuria [None]
  - Dyspnoea [None]
  - Urinary incontinence [None]
  - Hypoaesthesia [None]
  - Asthenia [None]
  - Blood magnesium decreased [None]
  - Diarrhoea [None]
  - Peripheral swelling [None]
  - Blood potassium decreased [None]

NARRATIVE: CASE EVENT DATE: 20141025
